FAERS Safety Report 20828984 (Version 3)
Quarter: 2022Q4

REPORT INFORMATION
  Report Type: Report from Study
  Country: BR (occurrence: BR)
  Receive Date: 20220513
  Receipt Date: 20221010
  Transmission Date: 20230113
  Serious: Yes (Other)
  Sender: FDA-Public Use
  Company Number: BR-TAKEDA-2022TUS006040

PATIENT
  Age: 61 Year
  Sex: Female
  Weight: 52 kg

DRUGS (14)
  1. HUMAN IMMUNOGLOBULIN G\HYALURONIDASE RECOMBINANT HUMAN [Suspect]
     Active Substance: HUMAN IMMUNOGLOBULIN G\HYALURONIDASE RECOMBINANT HUMAN
     Indication: Primary immunodeficiency syndrome
     Dosage: 300 MILLILITER
     Route: 058
     Dates: start: 202103
  2. NIMESULIDE [Suspect]
     Active Substance: NIMESULIDE
     Indication: Viral infection
     Route: 065
  3. PREGABALIN [Concomitant]
     Active Substance: PREGABALIN
     Indication: Fibromyalgia
     Dosage: 75 MILLIGRAM
     Route: 065
  4. PREGABALIN [Concomitant]
     Active Substance: PREGABALIN
     Indication: Osteoarthritis
  5. AMITRIPTYLINE [Concomitant]
     Active Substance: AMITRIPTYLINE
     Indication: Fibromyalgia
     Dosage: 25 MILLIGRAM
     Route: 065
  6. AMITRIPTYLINE [Concomitant]
     Active Substance: AMITRIPTYLINE
     Indication: Osteoarthritis
  7. ALPRAZOLAM [Concomitant]
     Active Substance: ALPRAZOLAM
     Indication: Fibromyalgia
     Dosage: 1 MILLIGRAM
     Route: 065
  8. ALPRAZOLAM [Concomitant]
     Active Substance: ALPRAZOLAM
     Indication: Osteoarthritis
  9. BIVOLET [Concomitant]
     Indication: Blood pressure abnormal
     Dosage: 5 MILLIGRAM
     Route: 065
  10. CORDAREX [Concomitant]
     Active Substance: AMIODARONE
     Indication: Blood pressure abnormal
     Dosage: 2.5 MILLIGRAM
     Route: 065
  11. Alenia [Concomitant]
     Indication: Asthma
     Dosage: UNK UNK, Q12H
  12. Alenia [Concomitant]
     Indication: Dyspnoea
  13. DYMISTA [Concomitant]
     Active Substance: AZELASTINE HYDROCHLORIDE\FLUTICASONE PROPIONATE
     Indication: Bronchiectasis
     Route: 065
  14. VITAMIN D3 [Concomitant]
     Active Substance: CHOLECALCIFEROL
     Indication: Product used for unknown indication
     Route: 065

REACTIONS (24)
  - Pneumonia [Unknown]
  - Arthritis [Recovered/Resolved]
  - Fibromyalgia [Recovered/Resolved]
  - Abdominal discomfort [Unknown]
  - Sneezing [Unknown]
  - Pain [Unknown]
  - Therapeutic product effect delayed [Unknown]
  - Application site haematoma [Unknown]
  - Illness anxiety disorder [Unknown]
  - Viral infection [Recovering/Resolving]
  - Sinusitis [Recovering/Resolving]
  - Cough [Unknown]
  - Oedema [Unknown]
  - Migraine [Unknown]
  - Blood pressure increased [Recovered/Resolved]
  - Malaise [Recovered/Resolved]
  - Influenza [Unknown]
  - Influenza like illness [Unknown]
  - Pyrexia [Recovered/Resolved]
  - Dyspnoea [Unknown]
  - Fatigue [Unknown]
  - Swelling [Not Recovered/Not Resolved]
  - Product use issue [Unknown]
  - Inappropriate schedule of product administration [Recovered/Resolved]

NARRATIVE: CASE EVENT DATE: 20220301
